FAERS Safety Report 4962862-9 (Version None)
Quarter: 2006Q2

REPORT INFORMATION
  Report Type: 
  Country: None (occurrence: None)
  Receive Date: 20060403
  Receipt Date: 20060403
  Transmission Date: 20061013
  Serious: Yes (Other)
  Sender: FDA-Public Use
  Company Number: None

PATIENT
  Age: 47 Year
  Sex: Female
  Weight: 56.6996 kg

DRUGS (1)
  1. COSYNTROPIN [Suspect]
     Indication: ADRENAL DISORDER
     Dosage: 0.25 MG ONCE IV BOLUS
     Route: 042
     Dates: start: 20051213, end: 20051213

REACTIONS (2)
  - PRURITUS [None]
  - RASH PAPULAR [None]
